FAERS Safety Report 10234510 (Version 1)
Quarter: 2014Q2

REPORT INFORMATION
  Report Type: Spontaneous
  Country: GB (occurrence: GB)
  Receive Date: 20140613
  Receipt Date: 20140613
  Transmission Date: 20141212
  Serious: Yes (Hospitalization)
  Sender: FDA-Public Use
  Company Number: GB-ACCORD-024192

PATIENT
  Age: 50 Year
  Sex: Male
  Weight: 100 kg

DRUGS (7)
  1. TRAMADOL [Concomitant]
     Dates: start: 20140131
  2. RAMIPRIL [Concomitant]
     Dates: start: 20140131
  3. ESOMEPRAZOLE/ESOMEPRAZOLE MAGNESIUM/ESOMEPRAZOLE SODIUM [Concomitant]
     Dates: start: 20140131
  4. AMITRIPTYLINE [Suspect]
     Indication: PRODUCT USED FOR UNKNOWN INDICATION
     Dates: start: 20140603
  5. DIHYDROCODEINE [Concomitant]
     Dates: start: 20140131
  6. PARACETAMOL [Concomitant]
     Dates: start: 20140424, end: 20140506
  7. FELODIPINE [Concomitant]
     Dates: start: 20140131

REACTIONS (1)
  - Circulatory collapse [Recovering/Resolving]
